FAERS Safety Report 26165276 (Version 1)
Quarter: 2025Q4

REPORT INFORMATION
  Report Type: Spontaneous
  Country: US (occurrence: None)
  Receive Date: 20251216
  Receipt Date: 20251216
  Transmission Date: 20260117
  Serious: Yes (Hospitalization)
  Sender: FDA-CTU
  Company Number: None

PATIENT
  Sex: Female

DRUGS (1)
  1. TOBRAMYCIN [Suspect]
     Active Substance: TOBRAMYCIN
     Indication: Pulmonary fibrosis
     Dosage: FREQUENCY : AS DIRECTED;?OTHER ROUTE : INHALE VIA NEBULIZER;
     Route: 050
     Dates: start: 20250715

REACTIONS (1)
  - Pulmonary embolism [None]
